FAERS Safety Report 9276214 (Version 1)
Quarter: 2013Q2

REPORT INFORMATION
  Report Type: Report from Study
  Country: AR (occurrence: AR)
  Receive Date: 20130507
  Receipt Date: 20130507
  Transmission Date: 20140414
  Serious: Yes (Other)
  Sender: FDA-Public Use
  Company Number: PHHY2013AR040571

PATIENT
  Age: 84 Year
  Sex: Male

DRUGS (2)
  1. EXELON PATCH [Suspect]
     Indication: PARKINSON^S DISEASE
     Dosage: 4.6 MG, DAILY
     Route: 062
     Dates: start: 201206
  2. EXELON PATCH [Suspect]
     Dosage: 9.5 MG, DAILY
     Route: 062
     Dates: start: 20130323

REACTIONS (3)
  - Jaw fracture [Recovered/Resolved]
  - Fall [Recovered/Resolved]
  - Aggression [Recovering/Resolving]
